FAERS Safety Report 15621433 (Version 1)
Quarter: 2018Q4

REPORT INFORMATION
  Report Type: Spontaneous
  Country: US (occurrence: US)
  Receive Date: 20181109
  Receipt Date: 20181109
  Transmission Date: 20190205
  Serious: Yes (Hospitalization)
  Sender: FDA-Public Use
  Company Number: None

PATIENT
  Age: 58 Year
  Sex: Male
  Weight: 77.9 kg

DRUGS (1)
  1. VANCOMYCIN [Suspect]
     Active Substance: VANCOMYCIN
     Indication: ARTHRITIS BACTERIAL
     Route: 042
     Dates: start: 20180619, end: 20180716

REACTIONS (8)
  - Asthenia [None]
  - Liver function test increased [None]
  - Rash generalised [None]
  - Myalgia [None]
  - Decreased appetite [None]
  - Eosinophilia [None]
  - Pyrexia [None]
  - Acute kidney injury [None]

NARRATIVE: CASE EVENT DATE: 20180725
